FAERS Safety Report 16994685 (Version 1)
Quarter: 2019Q4

REPORT INFORMATION
  Report Type: Other
  Country: CA (occurrence: CA)
  Receive Date: 20191105
  Receipt Date: 20191105
  Transmission Date: 20200122
  Serious: Yes (Other)
  Sender: FDA-Public Use
  Company Number: CA-PFIZER INC-2019471340

PATIENT
  Age: 69 Year
  Sex: Female

DRUGS (9)
  1. RISEDRONATE SODIUM. [Concomitant]
     Active Substance: RISEDRONATE SODIUM
     Dosage: UNK
  2. CICLESONIDE [Concomitant]
     Active Substance: CICLESONIDE
     Dosage: UNK
  3. ZOPICLONE [Concomitant]
     Active Substance: ZOPICLONE
     Dosage: UNK
  4. ACYCLOVIR [ACICLOVIR SODIUM] [Concomitant]
     Active Substance: ACYCLOVIR
     Dosage: UNK
  5. PANTOPRAZOLE [Concomitant]
     Active Substance: PANTOPRAZOLE
     Dosage: UNK
  6. GABAPENTIN. [Suspect]
     Active Substance: GABAPENTIN
     Dosage: 600 MG, 1X/DAY
     Route: 048
  7. GABAPENTIN. [Suspect]
     Active Substance: GABAPENTIN
     Indication: HOT FLUSH
     Dosage: 100 MG, 1X/DAY
     Route: 048
  8. AMITRIPTYLINE [Concomitant]
     Active Substance: AMITRIPTYLINE
     Dosage: UNK
  9. MOMETASONE FUROATE. [Concomitant]
     Active Substance: MOMETASONE FUROATE
     Dosage: UNK

REACTIONS (4)
  - Quality of life decreased [Unknown]
  - Hot flush [Unknown]
  - Drug ineffective for unapproved indication [Unknown]
  - Off label use [Unknown]
